FAERS Safety Report 5403853-3 (Version None)
Quarter: 2007Q3

REPORT INFORMATION
  Report Type: 
  Country: None (occurrence: None)
  Receive Date: 20070802
  Receipt Date: 20070725
  Transmission Date: 20080115
  Serious: Yes (Hospitalization, Other)
  Sender: FDA-Public Use
  Company Number: BR-AVENTIS-200714046GDDC

PATIENT
  Age: 13 Year
  Sex: Male
  Weight: 56 kg

DRUGS (6)
  1. INSULIN GLARGINE [Suspect]
     Dosage: DOSE: UNK
     Route: 058
     Dates: start: 20040101
  2. INSULIN GLARGINE [Suspect]
     Route: 058
     Dates: start: 20070427
  3. INSULIN GLARGINE [Suspect]
     Route: 058
  4. OPTIPEN (INSULIN PUMP) [Suspect]
  5. GLIFAGE [Concomitant]
     Dosage: DOSE QUANTITY: 2
     Route: 048
     Dates: start: 20040101
  6. NOVORAPID [Concomitant]
     Route: 048
     Dates: start: 20040101

REACTIONS (7)
  - DIABETIC KETOACIDOSIS [None]
  - DYSPEPSIA [None]
  - HYPERGLYCAEMIA [None]
  - KETOACIDOSIS [None]
  - NAUSEA [None]
  - PHARMACEUTICAL PRODUCT COMPLAINT [None]
  - VOMITING [None]
